FAERS Safety Report 6192378-6 (Version None)
Quarter: 2009Q2

REPORT INFORMATION
  Report Type: 
  Country: None (occurrence: None)
  Receive Date: 20090518
  Receipt Date: 20090512
  Transmission Date: 20091009
  Serious: Yes (Death, Life-Threatening, Hospitalization)
  Sender: FDA-Public Use
  Company Number: CL-JNJFOC-20081104393

PATIENT
  Sex: Female
  Weight: 60 kg

DRUGS (36)
  1. GOLIMUMAB [Suspect]
     Route: 058
  2. GOLIMUMAB [Suspect]
     Route: 058
  3. GOLIMUMAB [Suspect]
     Route: 058
  4. GOLIMUMAB [Suspect]
     Route: 058
  5. GOLIMUMAB [Suspect]
     Route: 058
  6. GOLIMUMAB [Suspect]
     Route: 058
  7. GOLIMUMAB [Suspect]
     Route: 058
  8. GOLIMUMAB [Suspect]
     Route: 058
  9. GOLIMUMAB [Suspect]
     Route: 058
  10. GOLIMUMAB [Suspect]
     Route: 058
  11. GOLIMUMAB [Suspect]
     Route: 058
  12. GOLIMUMAB [Suspect]
     Route: 058
  13. GOLIMUMAB [Suspect]
     Route: 058
  14. GOLIMUMAB [Suspect]
     Route: 058
  15. GOLIMUMAB [Suspect]
     Route: 058
  16. GOLIMUMAB [Suspect]
     Route: 058
  17. GOLIMUMAB [Suspect]
     Route: 058
  18. GOLIMUMAB [Suspect]
     Route: 058
  19. GOLIMUMAB [Suspect]
     Route: 058
  20. GOLIMUMAB [Suspect]
     Route: 058
  21. GOLIMUMAB [Suspect]
     Route: 058
  22. GOLIMUMAB [Suspect]
     Indication: RHEUMATOID ARTHRITIS
     Route: 058
  23. METHOTREXATE [Suspect]
     Route: 048
  24. METHOTREXATE [Suspect]
     Route: 048
  25. METHOTREXATE [Suspect]
     Route: 048
  26. METHOTREXATE [Suspect]
     Indication: RHEUMATOID ARTHRITIS
     Route: 048
  27. METHOTREXATE [Concomitant]
     Route: 048
  28. DICLOFENAC [Concomitant]
     Route: 048
  29. ACETAMINOPHEN [Concomitant]
     Route: 048
  30. OMEPRAZOL [Concomitant]
     Route: 048
  31. FOLIC ACID [Concomitant]
     Route: 048
  32. FERROUS SULFATE TAB [Concomitant]
     Route: 048
  33. FUROSEMIDE [Concomitant]
     Route: 048
  34. IPATROPIO [Concomitant]
     Route: 055
  35. PREDNISONE [Concomitant]
     Route: 048
  36. IPRATROPIO [Concomitant]
     Route: 055

REACTIONS (14)
  - ACUTE RESPIRATORY FAILURE [None]
  - CHOLELITHIASIS [None]
  - DIARRHOEA [None]
  - FEBRILE NEUTROPENIA [None]
  - LUNG DISORDER [None]
  - MOUTH ULCERATION [None]
  - MUCOSAL INFLAMMATION [None]
  - NIGHT SWEATS [None]
  - PANCYTOPENIA [None]
  - PNEUMONIA ASPIRATION [None]
  - SEPTIC SHOCK [None]
  - TREATMENT FAILURE [None]
  - VOMITING [None]
  - WEIGHT DECREASED [None]
